FAERS Safety Report 5630783-4 (Version None)
Quarter: 2008Q1

REPORT INFORMATION
  Report Type: 
  Country: None (occurrence: None)
  Receive Date: 20080219
  Receipt Date: 20080214
  Transmission Date: 20080703
  Serious: Yes (Death)
  Sender: FDA-Public Use
  Company Number: US-BRISTOL-MYERS SQUIBB COMPANY-14054001

PATIENT
  Age: 63 Year
  Sex: Male

DRUGS (13)
  1. SPRYCEL [Suspect]
     Indication: SYSTEMIC MASTOCYTOSIS
     Route: 048
  2. MILK OF MAGNESIA [Concomitant]
  3. POTASSIUM CHLORIDE [Concomitant]
  4. LANTUS [Concomitant]
  5. CORTISOL [Concomitant]
  6. LISINOPRIL [Concomitant]
  7. POTASSIUM CHLORIDE [Concomitant]
  8. MUCINEX [Concomitant]
  9. PEPCID [Concomitant]
  10. NAMENDA [Concomitant]
  11. NORVASC [Concomitant]
  12. ALBUTEROL [Concomitant]
  13. MYCELEX [Concomitant]

REACTIONS (1)
  - DEATH [None]
